FAERS Safety Report 21060386 (Version 1)
Quarter: 2022Q3

REPORT INFORMATION
  Report Type: Spontaneous
  Country: US (occurrence: US)
  Receive Date: 20220708
  Receipt Date: 20220708
  Transmission Date: 20221026
  Serious: No
  Sender: FDA-Public Use
  Company Number: US-SA-SAC20220705001277

PATIENT
  Age: 45 Year
  Sex: Male

DRUGS (2)
  1. DUPIXENT [Suspect]
     Active Substance: DUPILUMAB
     Indication: Dermatitis atopic
     Dosage: 300 MG, QOW
     Route: 058
     Dates: start: 202106
  2. BETAMETHASONE DIPROPIONATE, AUGMENTED [Concomitant]

REACTIONS (4)
  - Skin haemorrhage [Unknown]
  - Skin weeping [Unknown]
  - Oral herpes [Unknown]
  - Eczema [Unknown]

NARRATIVE: CASE EVENT DATE: 20220301
